FAERS Safety Report 10185977 (Version 1)
Quarter: 2014Q2

REPORT INFORMATION
  Report Type: Spontaneous
  Country: FR (occurrence: FR)
  Receive Date: 20140521
  Receipt Date: 20140521
  Transmission Date: 20141212
  Serious: Yes (Hospitalization)
  Sender: FDA-Public Use
  Company Number: FR-PFIZER INC-2014134472

PATIENT
  Age: 84 Year
  Sex: Female

DRUGS (4)
  1. AROMASINE [Suspect]
     Indication: BREAST CANCER
     Dosage: 1 DF, 1X/DAY
     Route: 048
     Dates: start: 20140317, end: 20140414
  2. ART 50 [Concomitant]
     Indication: OSTEOARTHRITIS
     Dosage: 50 MG, 1X/DAY
     Route: 048
     Dates: start: 2010
  3. CLIMAXOL [Concomitant]
     Dosage: UNK
     Route: 048
     Dates: start: 2010
  4. XALATAN [Concomitant]
     Indication: DRY EYE
     Dosage: 1 GTT, 1X/DAY
     Route: 047
     Dates: start: 2010

REACTIONS (1)
  - Thrombocytopenia [Recovering/Resolving]
